FAERS Safety Report 5093213-X (Version None)
Quarter: 2006Q3

REPORT INFORMATION
  Report Type: 
  Country: None (occurrence: None)
  Receive Date: 20060829
  Receipt Date: 20060829
  Transmission Date: 20061208
  Serious: Yes (Hospitalization)
  Sender: FDA-Public Use
  Company Number: None

PATIENT
  Sex: Male
  Weight: 69.27 kg

DRUGS (2)
  1. TRAZODONE HCL [Suspect]
     Indication: DEPRESSION
     Dosage: 1500 MG PO
     Route: 048
     Dates: start: 20060416
  2. SEROQUEL [Suspect]
     Indication: AFFECTIVE DISORDER
     Dosage: 1000 MG PO
     Route: 048
     Dates: start: 20060416

REACTIONS (1)
  - INCORRECT DOSE ADMINISTERED [None]
